FAERS Safety Report 6757193-0 (Version None)
Quarter: 2010Q2

REPORT INFORMATION
  Report Type: 
  Country: None (occurrence: None)
  Receive Date: 20100607
  Receipt Date: 20100527
  Transmission Date: 20101027
  Serious: Yes (Hospitalization)
  Sender: FDA-Public Use
  Company Number: US-BIOGENIDEC-2009BI032139

PATIENT
  Age: 59 Year
  Sex: Female

DRUGS (2)
  1. AVONEX [Suspect]
     Indication: MULTIPLE SCLEROSIS
     Route: 030
  2. AVONEX [Suspect]
     Route: 030
     Dates: start: 20060826

REACTIONS (5)
  - ANKLE FRACTURE [None]
  - FALL [None]
  - FRACTURE MALUNION [None]
  - HIP FRACTURE [None]
  - WOUND INFECTION STAPHYLOCOCCAL [None]
